FAERS Safety Report 4354459-9 (Version None)
Quarter: 2004Q2

REPORT INFORMATION
  Report Type: 
  Country: None (occurrence: None)
  Receive Date: 20040503
  Receipt Date: 20040419
  Transmission Date: 20050107
  Serious: Yes (Hospitalization)
  Sender: FDA-Public Use
  Company Number: RENA-10994

PATIENT
  Age: 69 Year
  Sex: Male

DRUGS (7)
  1. BEZALIP [Suspect]
     Indication: HYPERCHOLESTEROLAEMIA
     Dosage: 1200 MG QD PO
     Route: 048
     Dates: start: 20011124, end: 20011127
  2. NESPO [Suspect]
     Dosage: 20 MCG DAILY
     Dates: start: 20011012, end: 20011130
  3. RENAGEL [Suspect]
     Indication: HYPERPHOSPHATAEMIA
     Dates: start: 20011009, end: 20011130
  4. ROCLTROL [Concomitant]
  5. ASPIRIN [Concomitant]
  6. CARVIPRESS [Concomitant]
  7. APROVEL [Concomitant]

REACTIONS (1)
  - RHABDOMYOLYSIS [None]
